FAERS Safety Report 13925598 (Version 1)
Quarter: 2017Q3

REPORT INFORMATION
  Report Type: Spontaneous
  Country: GB (occurrence: GB)
  Receive Date: 20170831
  Receipt Date: 20170831
  Transmission Date: 20171127
  Serious: Yes (Hospitalization)
  Sender: FDA-Public Use
  Company Number: GB-TEVA-800245ACC

PATIENT
  Age: 61 Year
  Sex: Female
  Weight: 76 kg

DRUGS (6)
  1. SIMVASTATIN. [Concomitant]
     Active Substance: SIMVASTATIN
  2. CITALOPRAM [Concomitant]
     Active Substance: CITALOPRAM HYDROBROMIDE
  3. OMEPRAZOLE SODIUM [Concomitant]
     Active Substance: OMEPRAZOLE SODIUM
  4. QUININE SULPHATE [Suspect]
     Active Substance: QUININE SULFATE
     Indication: RESTLESS LEGS SYNDROME
     Route: 048
     Dates: start: 20170714, end: 20170721
  5. CARBOCYSTEINE [Concomitant]
     Active Substance: CARBOCYSTEINE
  6. TIOTROPIUM [Concomitant]
     Active Substance: TIOTROPIUM

REACTIONS (4)
  - Immune thrombocytopenic purpura [Recovered/Resolved]
  - Haemoptysis [Unknown]
  - Haematuria [Unknown]
  - Petechiae [Unknown]

NARRATIVE: CASE EVENT DATE: 20170718
